FAERS Safety Report 18962974 (Version 1)
Quarter: 2021Q1

REPORT INFORMATION
  Report Type: Spontaneous
  Country: US (occurrence: US)
  Receive Date: 20210303
  Receipt Date: 20210303
  Transmission Date: 20210420
  Serious: No
  Sender: FDA-Public Use
  Company Number: US-ELI_LILLY_AND_COMPANY-US202102009911

PATIENT
  Sex: Female

DRUGS (1)
  1. BAMLANIVIMAB 700MG [Suspect]
     Active Substance: BAMLANIVIMAB
     Indication: COVID-19
     Dosage: UNK, SINGLE
     Route: 065
     Dates: start: 20210113, end: 20210113

REACTIONS (22)
  - Oropharyngeal blistering [Unknown]
  - Lethargy [Unknown]
  - Tongue exfoliation [Unknown]
  - Cough [Unknown]
  - Contusion [Unknown]
  - Gastritis [Unknown]
  - Ear pain [Unknown]
  - Herpes zoster reactivation [Unknown]
  - Abdominal hernia [Unknown]
  - Inflammation [Unknown]
  - Stress [Unknown]
  - Feeding disorder [Unknown]
  - Autoimmune disorder [Unknown]
  - Oral mucosal blistering [Unknown]
  - Fatigue [Unknown]
  - Pneumonia [Unknown]
  - Arthritis [Unknown]
  - Feeling abnormal [Unknown]
  - COVID-19 [Unknown]
  - Dyspnoea [Unknown]
  - Arthralgia [Unknown]
  - Dizziness [Unknown]

NARRATIVE: CASE EVENT DATE: 20210207
